FAERS Safety Report 6501507-3 (Version None)
Quarter: 2009Q4

REPORT INFORMATION
  Report Type: 
  Country: None (occurrence: None)
  Receive Date: 20091127
  Receipt Date: 20090109
  Transmission Date: 20100525
  Serious: Yes (Hospitalization)
  Sender: FDA-Public Use
  Company Number: WAES 0707USA05063

PATIENT
  Age: 50 Year
  Sex: Male

DRUGS (6)
  1. FOSAMAX [Suspect]
     Indication: COMPRESSION FRACTURE
     Dosage: 10 MG/PO
     Route: 048
     Dates: start: 19990730, end: 20070301
  2. FOSAMAX [Suspect]
     Indication: OSTEOPOROSIS
     Dosage: 10 MG/PO
     Route: 048
     Dates: start: 19990730, end: 20070301
  3. ACTONEL [Concomitant]
  4. VIOXX [Concomitant]
  5. ALBUTEROL [Concomitant]
  6. RANITIDINE [Concomitant]

REACTIONS (23)
  - ASTHENIA [None]
  - BACK PAIN [None]
  - BRONCHITIS [None]
  - EMPHYSEMA [None]
  - EXOSTOSIS [None]
  - HYPERTENSION [None]
  - HYPOTENSION [None]
  - KYPHOSIS [None]
  - MALNUTRITION [None]
  - MUSCULOSKELETAL CHEST PAIN [None]
  - MUSCULOSKELETAL PAIN [None]
  - ORAL INFECTION [None]
  - OSTEOMYELITIS [None]
  - OSTEONECROSIS [None]
  - OSTEOPENIA [None]
  - PAIN [None]
  - PAIN IN EXTREMITY [None]
  - PENILE HAEMORRHAGE [None]
  - RAYNAUD'S PHENOMENON [None]
  - RIB HYPOPLASIA [None]
  - SCOLIOSIS [None]
  - THORACIC VERTEBRAL FRACTURE [None]
  - WEIGHT DECREASED [None]
